FAERS Safety Report 6915172-4 (Version None)
Quarter: 2010Q3

REPORT INFORMATION
  Report Type: 
  Country: None (occurrence: None)
  Receive Date: 20100805
  Receipt Date: 20100805
  Transmission Date: 20110219
  Serious: Yes (Death, Hospitalization)
  Sender: FDA-Public Use
  Company Number: None

PATIENT
  Age: 42 Year
  Sex: Female

DRUGS (2)
  1. CETUXIMAB 250MG/M2 50ML = 100MG AT 2MG/ML CONCENTRATE [Suspect]
     Indication: NON-SMALL CELL LUNG CANCER
     Dosage: 400MG WEEKLY IV
     Route: 042
     Dates: start: 20100714, end: 20100722
  2. TARCEVA [Suspect]
     Indication: NON-SMALL CELL LUNG CANCER
     Dosage: 150MG DAILY PO
     Route: 048
     Dates: start: 20100714, end: 20100731

REACTIONS (19)
  - ANAEMIA [None]
  - BLOOD GLUCOSE INCREASED [None]
  - BLOOD LACTIC ACID INCREASED [None]
  - CHILLS [None]
  - FATIGUE [None]
  - GENERAL PHYSICAL HEALTH DETERIORATION [None]
  - HYPERKALAEMIA [None]
  - HYPOGLYCAEMIA [None]
  - LEUKOCYTOSIS [None]
  - METASTASES TO LIVER [None]
  - ORGAN FAILURE [None]
  - PNEUMONIA [None]
  - PYREXIA [None]
  - RENAL DISORDER [None]
  - RENAL IMPAIRMENT [None]
  - RESPIRATORY FAILURE [None]
  - SEPSIS [None]
  - TACHYCARDIA [None]
  - TACHYPNOEA [None]
